FAERS Safety Report 8996684 (Version 1)
Quarter: 2013Q1

REPORT INFORMATION
  Report Type: Spontaneous
  Country: US (occurrence: US)
  Receive Date: 20130104
  Receipt Date: 20130104
  Transmission Date: 20140127
  Serious: No
  Sender: FDA-Public Use
  Company Number: US-BAYER-2013-000276

PATIENT
  Age: 32 Year
  Sex: Female

DRUGS (3)
  1. MIRENA [Suspect]
     Indication: CONTRACEPTION
     Dosage: 20 MCG/24HR, CONT
     Route: 015
     Dates: start: 20121226
  2. MIRENA [Suspect]
     Indication: MENORRHAGIA
  3. MIRENA [Suspect]
     Indication: DYSMENORRHOEA

REACTIONS (9)
  - Lymphadenopathy [None]
  - Dizziness [None]
  - Device issue [None]
  - Abdominal pain lower [None]
  - Medical device discomfort [None]
  - Nausea [None]
  - Headache [None]
  - Vaginal discharge [None]
  - Presyncope [None]
